FAERS Safety Report 10045231 (Version 2)
Quarter: 2014Q1

REPORT INFORMATION
  Report Type: Spontaneous
  Country: FR (occurrence: FR)
  Receive Date: 20140328
  Receipt Date: 20140328
  Transmission Date: 20141002
  Serious: Yes (Other)
  Sender: FDA-Public Use
  Company Number: FR-UCBSA-110498

PATIENT
  Age: 58 Year
  Sex: Male
  Weight: 110 kg

DRUGS (4)
  1. NEUPRO [Suspect]
     Indication: PARKINSON^S DISEASE
     Dosage: DAILY DOSE: 6MG
     Dates: start: 20120424, end: 201401
  2. PRAVASTATINE [Concomitant]
  3. COTAREG [Concomitant]
  4. AZILECT [Concomitant]

REACTIONS (3)
  - Delirium [Recovering/Resolving]
  - Bulimia nervosa [Recovered/Resolved]
  - Hypersexuality [Recovered/Resolved]
